FAERS Safety Report 11969449 (Version 1)
Quarter: 2016Q1

REPORT INFORMATION
  Report Type: Spontaneous
  Country: US (occurrence: US)
  Receive Date: 20160128
  Receipt Date: 20160128
  Transmission Date: 20160526
  Serious: No
  Sender: FDA-Public Use
  Company Number: US-MYLANLABS-2015M1037772

PATIENT
  Sex: Female

DRUGS (2)
  1. VALSARTAN TABLETS, USP [Suspect]
     Active Substance: VALSARTAN
     Dosage: 160 MG, BID
     Route: 048
  2. VALSARTAN TABLETS, USP [Suspect]
     Active Substance: VALSARTAN
     Indication: HYPERTENSION
     Dosage: 160 MG, BID
     Route: 048

REACTIONS (1)
  - Chromaturia [Not Recovered/Not Resolved]
